FAERS Safety Report 26045862 (Version 1)
Quarter: 2025Q4

REPORT INFORMATION
  Report Type: Spontaneous
  Country: TW (occurrence: CN)
  Receive Date: 20251114
  Receipt Date: 20251114
  Transmission Date: 20260118
  Serious: Yes (Life-Threatening, Hospitalization, Other)
  Sender: RANBAXY
  Company Number: TW-SUN PHARMACEUTICAL INDUSTRIES INC-2025R1-535794

PATIENT
  Age: 25 Year
  Sex: Female

DRUGS (6)
  1. NIMODIPINE [Suspect]
     Active Substance: NIMODIPINE
     Indication: Brain oedema
     Dosage: UNK
     Route: 065
  2. NIMODIPINE [Suspect]
     Active Substance: NIMODIPINE
     Indication: Cerebral infarction
  3. NIMODIPINE [Suspect]
     Active Substance: NIMODIPINE
     Indication: Cerebral haemorrhage
  4. MANNITOL [Suspect]
     Active Substance: MANNITOL
     Indication: Cerebral haemorrhage
     Dosage: UNK
     Route: 065
  5. MANNITOL [Suspect]
     Active Substance: MANNITOL
     Indication: Brain oedema
  6. MANNITOL [Suspect]
     Active Substance: MANNITOL
     Indication: Cerebral infarction

REACTIONS (1)
  - Haemothorax [Unknown]
